FAERS Safety Report 15015174 (Version 1)
Quarter: 2018Q2

REPORT INFORMATION
  Report Type: Spontaneous
  Country: DE (occurrence: DE)
  Receive Date: 20180615
  Receipt Date: 20180615
  Transmission Date: 20180711
  Serious: Yes (Death, Life-Threatening, Hospitalization)
  Sender: FDA-Public Use
  Company Number: DE-TEVA-2018-DE-908622

PATIENT
  Age: 54 Year
  Sex: Male
  Weight: 75 kg

DRUGS (11)
  1. FUROSEMIDE. [Suspect]
     Active Substance: FUROSEMIDE
     Dosage: , 1-1-0-0, TABLETTEN
     Route: 048
  2. FERINJECT [Concomitant]
     Active Substance: FERRIC CARBOXYMALTOSE
     Dosage: , EVERY 3-4 WEEKS,
     Route: 015
  3. ROCATROL [Concomitant]
     Dosage: 0.25 ?G, 1-0-0-0, KAPSELN
     Route: 048
  4. ADENURIC 80MG [Concomitant]
     Dosage: 3X PER WEEKEND, TABLETS
     Route: 048
  5. PANTOPRAZOL [Concomitant]
     Active Substance: PANTOPRAZOLE SODIUM
     Dosage: 1-0-0-0, TABLETTEN
     Route: 048
  6. IMODIUM [Concomitant]
     Active Substance: LOPERAMIDE HYDROCHLORIDE
     Dosage: NEED TABLETTEN
     Route: 048
  7. TINCTURA OPII [Concomitant]
     Dosage: 1-0-1-0, TROPFEN
     Route: 048
  8. CARVEDILOL. [Concomitant]
     Active Substance: CARVEDILOL
     Dosage: 1-0-0.5-0, TABLETTEN
     Route: 048
  9. ARANESP 10MIKROGRAMM [Concomitant]
     Route: 058
  10. MAGNESIUM VERLA [Concomitant]
     Active Substance: MAGNESIUM
     Dosage: 1-0-0-0, TABLETTEN
     Route: 048
  11. CALCIUM [Concomitant]
     Active Substance: CALCIUM
     Dosage: , 1-0-1-0, TABLETTEN
     Route: 048

REACTIONS (3)
  - Dizziness [Unknown]
  - Renal impairment [Unknown]
  - Drug prescribing error [Unknown]
